FAERS Safety Report 25178380 (Version 1)
Quarter: 2025Q2

REPORT INFORMATION
  Report Type: Spontaneous
  Country: US (occurrence: US)
  Receive Date: 20250409
  Receipt Date: 20250409
  Transmission Date: 20250717
  Serious: No
  Sender: ROCHE
  Company Number: US-ROCHE-10000248787

PATIENT
  Age: 52 Year
  Sex: Female
  Weight: 81.64 kg

DRUGS (1)
  1. RITUXAN [Suspect]
     Active Substance: RITUXIMAB
     Indication: Relapsing-remitting multiple sclerosis
     Route: 042
     Dates: start: 20240412

REACTIONS (4)
  - Intentional product use issue [Unknown]
  - Burning mouth syndrome [Not Recovered/Not Resolved]
  - JC virus infection [Not Recovered/Not Resolved]
  - Visual impairment [Unknown]

NARRATIVE: CASE EVENT DATE: 20240412
